FAERS Safety Report 6885049-1 (Version None)
Quarter: 2010Q3

REPORT INFORMATION
  Report Type: 
  Country: None (occurrence: None)
  Receive Date: 20100729
  Receipt Date: 20080111
  Transmission Date: 20110219
  Serious: No
  Sender: FDA-Public Use
  Company Number: US-PFIZER INC-2007089789

PATIENT
  Sex: Male
  Weight: 70.31 kg

DRUGS (3)
  1. CELEBREX [Suspect]
     Indication: JOINT SWELLING
     Dates: start: 20071019
  2. ANTACID TAB [Concomitant]
  3. ACETYLSALICYLIC ACID SRT [Concomitant]

REACTIONS (1)
  - DRUG INEFFECTIVE [None]
